FAERS Safety Report 24651530 (Version 1)
Quarter: 2024Q4

REPORT INFORMATION
  Report Type: Spontaneous
  Country: US (occurrence: US)
  Receive Date: 20241122
  Receipt Date: 20241122
  Transmission Date: 20250114
  Serious: Yes (Life-Threatening, Hospitalization, Disabling, Other)
  Sender: ALKEM
  Company Number: None

PATIENT
  Age: 31 Year
  Sex: Female

DRUGS (4)
  1. TACROLIMUS [Suspect]
     Active Substance: TACROLIMUS
     Indication: Immunosuppressant drug therapy
     Dosage: UNK
     Route: 065
  2. TACROLIMUS [Suspect]
     Active Substance: TACROLIMUS
     Indication: Graft versus host disease in lung
     Dosage: UNK
     Route: 065
     Dates: end: 20210303
  3. RITUXAN [Suspect]
     Active Substance: RITUXIMAB
     Indication: Immunosuppressant drug therapy
     Dosage: 375 MILLIGRAM/SQ. METER (EVERY 1 WEEK)
     Route: 065
  4. RITUXAN [Suspect]
     Active Substance: RITUXIMAB
     Indication: Graft versus host disease in lung

REACTIONS (8)
  - Purpura fulminans [Recovering/Resolving]
  - Cardiogenic shock [Recovering/Resolving]
  - Gangrene [Unknown]
  - Septic shock [Recovering/Resolving]
  - Capnocytophaga sepsis [Recovering/Resolving]
  - Disseminated intravascular coagulation [Unknown]
  - Graft versus host disease in skin [Unknown]
  - Graft versus host disease in lung [Unknown]

NARRATIVE: CASE EVENT DATE: 20180101
